FAERS Safety Report 15625383 (Version 1)
Quarter: 2018Q4

REPORT INFORMATION
  Report Type: Spontaneous
  Country: US (occurrence: US)
  Receive Date: 20181112
  Receipt Date: 20181112
  Transmission Date: 20190205
  Serious: Yes (Hospitalization)
  Sender: FDA-Public Use
  Company Number: None

PATIENT
  Age: 14 Year
  Sex: Female
  Weight: 65.4 kg

DRUGS (10)
  1. LEUCOVORIN CALCIUM. [Suspect]
     Active Substance: LEUCOVORIN CALCIUM
     Dates: end: 20181001
  2. ONCASPAR [Suspect]
     Active Substance: PEGASPARGASE
     Dates: end: 20181003
  3. DAUNORUBICIN [Suspect]
     Active Substance: DAUNORUBICIN
     Dates: end: 20181002
  4. DEXAMETHASONE. [Suspect]
     Active Substance: DEXAMETHASONE
     Dates: end: 20181003
  5. ZINECARD [Suspect]
     Active Substance: DEXRAZOXANE HYDROCHLORIDE
     Dates: end: 20181002
  6. IFOSFAMIDE. [Suspect]
     Active Substance: IFOSFAMIDE
     Dates: end: 20181001
  7. VINCRISTINE SULFATE. [Suspect]
     Active Substance: VINCRISTINE SULFATE
     Dates: end: 20181003
  8. MESNA. [Suspect]
     Active Substance: MESNA
     Dates: end: 20181001
  9. GLEEVEC [Suspect]
     Active Substance: IMATINIB MESYLATE
     Dates: end: 20181017
  10. METHOTREXATE. [Suspect]
     Active Substance: METHOTREXATE
     Dates: end: 20180929

REACTIONS (7)
  - Therapy cessation [None]
  - Acute kidney injury [None]
  - Acute respiratory distress syndrome [None]
  - Pneumocystis jirovecii pneumonia [None]
  - Infection [None]
  - Abdominal abscess [None]
  - Hyperbilirubinaemia [None]

NARRATIVE: CASE EVENT DATE: 20181028
